FAERS Safety Report 9675447 (Version 1)
Quarter: 2013Q4

REPORT INFORMATION
  Report Type: Spontaneous
  Country: TR (occurrence: None)
  Receive Date: 20131105
  Receipt Date: 20131105
  Transmission Date: 20140711
  Serious: Yes (Other)
  Sender: FDA-Public Use
  Company Number: FK201304794

PATIENT
  Age: 16 Year
  Sex: Male

DRUGS (2)
  1. PYRIDOXINE [Suspect]
     Indication: TOXICITY TO VARIOUS AGENTS
  2. ISONIAZID [Suspect]
     Indication: SUICIDE ATTEMPT
     Dosage: 20-300 MG

REACTIONS (5)
  - Rhabdomyolysis [None]
  - Vomiting [None]
  - Muscle contractions involuntary [None]
  - Grand mal convulsion [None]
  - Toxicity to various agents [None]
